FAERS Safety Report 18574970 (Version 1)
Quarter: 2020Q4

REPORT INFORMATION
  Report Type: Spontaneous
  Country: US (occurrence: US)
  Receive Date: 20201203
  Receipt Date: 20201203
  Transmission Date: 20210114
  Serious: Yes (Death)
  Sender: FDA-Public Use
  Company Number: US-PFIZER INC-2020469976

PATIENT
  Age: 47 Year
  Sex: Female

DRUGS (14)
  1. LITHIUM. [Concomitant]
     Active Substance: LITHIUM
     Indication: OBSESSIVE-COMPULSIVE DISORDER
  2. ATIVAN [Suspect]
     Active Substance: LORAZEPAM
     Dosage: UNK
  3. LORAZEPAM. [Concomitant]
     Active Substance: LORAZEPAM
     Dosage: UNK
  4. LITHIUM. [Concomitant]
     Active Substance: LITHIUM
     Indication: SCHIZOPHRENIA
     Dosage: UNK (600MG)
  5. METFORMIN [Concomitant]
     Active Substance: METFORMIN HYDROCHLORIDE
     Dosage: 500 MG, DAILY
  6. HALDOL [Concomitant]
     Active Substance: HALOPERIDOL
     Dosage: UNK (2MG)
  7. CLINDAMYCIN. [Suspect]
     Active Substance: CLINDAMYCIN
     Indication: TYMPANIC MEMBRANE PERFORATION
     Dosage: UNK
     Dates: start: 20180925
  8. METFORMIN [Concomitant]
     Active Substance: METFORMIN HYDROCHLORIDE
     Dosage: 1000 MG, DAILY
  9. WELLBUTRIN [Concomitant]
     Active Substance: BUPROPION HYDROCHLORIDE
     Dosage: UNK (400MG)
  10. AMANTADINE. [Concomitant]
     Active Substance: AMANTADINE HYDROCHLORIDE
     Dosage: UNK (200MG)
  11. CLOZARIL [Concomitant]
     Active Substance: CLOZAPINE
     Dosage: UNK
  12. LEVOTHYROXINE. [Concomitant]
     Active Substance: LEVOTHYROXINE
     Dosage: UNK (37.5UG)
  13. PREDNISONE. [Suspect]
     Active Substance: PREDNISONE
     Dosage: UNK
  14. CHLORAL HYDRATE [Concomitant]
     Active Substance: CHLORAL HYDRATE
     Dosage: UNK (THREE TEASPOONS)

REACTIONS (6)
  - Off label use [Unknown]
  - Peripheral swelling [Recovered/Resolved]
  - Drug ineffective for unapproved indication [Unknown]
  - Tremor [Recovered/Resolved]
  - Disorganised speech [Recovered/Resolved]
  - Renal impairment [Fatal]
